FAERS Safety Report 5223506-4 (Version None)
Quarter: 2007Q1

REPORT INFORMATION
  Report Type: 
  Country: None (occurrence: None)
  Receive Date: 20070125
  Receipt Date: 20070112
  Transmission Date: 20070707
  Serious: Yes (Hospitalization, Other)
  Sender: FDA-Public Use
  Company Number: 2005BI015058

PATIENT
  Age: 46 Year
  Sex: Female
  Weight: 48.9885 kg

DRUGS (5)
  1. AVONEX [Suspect]
     Indication: MULTIPLE SCLEROSIS
     Dosage: 15 + 22.5 + 30 UG; X1; IM
     Route: 030
     Dates: start: 20020101, end: 20020101
  2. AVONEX [Suspect]
     Indication: MULTIPLE SCLEROSIS
     Dosage: 15 + 22.5 + 30 UG; X1; IM
     Route: 030
     Dates: start: 20020101, end: 20020101
  3. AVONEX [Suspect]
     Indication: MULTIPLE SCLEROSIS
     Dosage: 15 + 22.5 + 30 UG; X1; IM
     Route: 030
     Dates: start: 20020220, end: 20050803
  4. AVONEX [Suspect]
     Indication: MULTIPLE SCLEROSIS
     Dosage: 30 UG; QW; IM
     Route: 030
     Dates: start: 20030101, end: 20030101
  5. CHEMOTHERAPY [Concomitant]

REACTIONS (4)
  - ATRIAL FIBRILLATION [None]
  - JAUNDICE [None]
  - MULTIPLE SCLEROSIS [None]
  - THINKING ABNORMAL [None]
